FAERS Safety Report 9624341 (Version 2)
Quarter: 2013Q4

REPORT INFORMATION
  Report Type: Spontaneous
  Country: AR (occurrence: AR)
  Receive Date: 20131015
  Receipt Date: 20131022
  Transmission Date: 20140711
  Serious: Yes (Other)
  Sender: FDA-Public Use
  Company Number: AR-TEVA-436550ISR

PATIENT
  Age: 32 Year
  Sex: Female

DRUGS (6)
  1. ZIPRASIDONE [Suspect]
     Indication: INTENTIONAL OVERDOSE
     Route: 048
  2. PREGABALIN [Suspect]
     Indication: INTENTIONAL OVERDOSE
     Route: 048
  3. LAMOTRIGINE [Suspect]
     Indication: INTENTIONAL OVERDOSE
     Route: 048
  4. AGOMELATINE [Suspect]
     Indication: INTENTIONAL OVERDOSE
     Route: 048
  5. IBUPROFEN [Suspect]
     Indication: INTENTIONAL OVERDOSE
     Route: 048
  6. VENLAFAXINE [Suspect]
     Indication: INTENTIONAL OVERDOSE
     Route: 048

REACTIONS (3)
  - Electrocardiogram QT prolonged [Recovered/Resolved]
  - Coma [Unknown]
  - Intentional overdose [Unknown]
